FAERS Safety Report 21986259 (Version 6)
Quarter: 2023Q2

REPORT INFORMATION
  Report Type: Spontaneous
  Country: US (occurrence: US)
  Receive Date: 20230213
  Receipt Date: 20230606
  Transmission Date: 20230722
  Serious: No
  Sender: FDA-Public Use
  Company Number: US-PFIZER INC-202300058980

PATIENT
  Age: 15 Year
  Sex: Male
  Weight: 44 kg

DRUGS (2)
  1. GENOTROPIN [Suspect]
     Active Substance: SOMATROPIN
     Indication: Growth hormone deficiency
     Dosage: 6 NIGHTS A WEEK, ALTERNATED BETWEEN 1.6 MG AND 1.8 FOR AVERAGE 1.7 MG
     Dates: start: 20230203
  2. GENOTROPIN [Suspect]
     Active Substance: SOMATROPIN
     Dosage: UNK (ALTERNATED 1.6 MG AND 1.8 MG, 6 DAYS A WEEK)

REACTIONS (7)
  - Injection site pain [Recovering/Resolving]
  - Pain in extremity [Unknown]
  - Device leakage [Unknown]
  - Device mechanical issue [Unknown]
  - Incorrect dose administered by device [Unknown]
  - Drug dose omission by device [Unknown]
  - Product prescribing issue [Unknown]

NARRATIVE: CASE EVENT DATE: 20230201
